FAERS Safety Report 6331739-9 (Version None)
Quarter: 2009Q3

REPORT INFORMATION
  Report Type: 
  Country: None (occurrence: None)
  Receive Date: 20090827
  Receipt Date: 20090817
  Transmission Date: 20100115
  Serious: Yes (Death)
  Sender: FDA-Public Use
  Company Number: VN-BAXTER-2009BH013129

PATIENT
  Sex: Female

DRUGS (1)
  1. DIANEAL [Suspect]
     Indication: PERITONEAL DIALYSIS
     Route: 033
     Dates: start: 20060925, end: 20090719

REACTIONS (2)
  - CARDIAC FAILURE [None]
  - CARDIOVASCULAR DISORDER [None]
